FAERS Safety Report 10550475 (Version 1)
Quarter: 2014Q4

REPORT INFORMATION
  Report Type: Spontaneous
  Country: US (occurrence: US)
  Receive Date: 20141029
  Receipt Date: 20141029
  Transmission Date: 20150529
  Serious: No
  Sender: FDA-Public Use
  Company Number: US-TEVA-475604USA

PATIENT
  Sex: Male
  Weight: 77.18 kg

DRUGS (2)
  1. SLEEP PILL [Concomitant]
     Indication: SLEEP DISORDER
  2. PROVIGIL [Suspect]
     Active Substance: MODAFINIL
     Indication: SOMNOLENCE

REACTIONS (3)
  - Sperm concentration decreased [Not Recovered/Not Resolved]
  - Back pain [Not Recovered/Not Resolved]
  - Musculoskeletal pain [Not Recovered/Not Resolved]
